FAERS Safety Report 5310318-6 (Version None)
Quarter: 2007Q2

REPORT INFORMATION
  Report Type: 
  Country: None (occurrence: None)
  Receive Date: 20070427
  Receipt Date: 20070419
  Transmission Date: 20071010
  Serious: Yes (Hospitalization)
  Sender: FDA-Public Use
  Company Number: FRWYE499920APR07

PATIENT
  Age: 55 Year
  Sex: Female

DRUGS (1)
  1. ENBREL [Suspect]
     Indication: PUSTULAR PSORIASIS
     Dosage: UNKNOWN
     Route: 058
     Dates: start: 20070101

REACTIONS (3)
  - DERMATITIS EXFOLIATIVE [None]
  - ERYSIPELAS [None]
  - SHOCK [None]
